FAERS Safety Report 16970346 (Version 6)
Quarter: 2021Q3

REPORT INFORMATION
  Report Type: Spontaneous
  Country: US (occurrence: US)
  Receive Date: 20191029
  Receipt Date: 20210726
  Transmission Date: 20211014
  Serious: Yes (Other)
  Sender: FDA-Public Use
  Company Number: US-GILEAD-2019-0434731

PATIENT
  Age: 41 Year
  Sex: Female
  Weight: 61.22 kg

DRUGS (36)
  1. HEPARIN [Concomitant]
     Active Substance: HEPARIN SODIUM
  2. PREDNISONE. [Concomitant]
     Active Substance: PREDNISONE
  3. TETRACYCLINE [Concomitant]
     Active Substance: TETRACYCLINE
  4. CRIXIVAN [Concomitant]
     Active Substance: INDINAVIR SULFATE
  5. FUZEON [Concomitant]
     Active Substance: ENFUVIRTIDE
  6. INVIRASE [Concomitant]
     Active Substance: SAQUINAVIR MESYLATE
  7. VIRAMUNE [Concomitant]
     Active Substance: NEVIRAPINE
  8. ZIAGEN [Concomitant]
     Active Substance: ABACAVIR SULFATE
  9. VIREAD [Suspect]
     Active Substance: TENOFOVIR DISOPROXIL FUMARATE
     Dosage: UNK
     Route: 048
     Dates: start: 20010516, end: 20100420
  10. GANCICLOVIR. [Concomitant]
     Active Substance: GANCICLOVIR
  11. LEXIVA [Concomitant]
     Active Substance: FOSAMPRENAVIR CALCIUM
  12. SELZENTRY [Concomitant]
     Active Substance: MARAVIROC
  13. DOXYCYCLINE MONOHYDRATE [Concomitant]
     Active Substance: DOXYCYCLINE
  14. PENICILLIN NOS [Concomitant]
     Active Substance: PENICILLIN
  15. VIDEX EC [Concomitant]
     Active Substance: DIDANOSINE
  16. ASPIRIN (E.C.) [Concomitant]
     Active Substance: ASPIRIN
  17. ISENTRESS [Concomitant]
     Active Substance: RALTEGRAVIR POTASSIUM
  18. PREZISTA [Concomitant]
     Active Substance: DARUNAVIR ETHANOLATE
  19. PREDNISOLONE ACETATE. [Concomitant]
     Active Substance: PREDNISOLONE ACETATE
  20. BRIMONIDINE [Concomitant]
     Active Substance: BRIMONIDINE TARTRATE
  21. CICLESONIDE [Concomitant]
     Active Substance: CICLESONIDE
  22. EPIVIR [Concomitant]
     Active Substance: LAMIVUDINE
  23. PANTOPRAZOLE [Concomitant]
     Active Substance: PANTOPRAZOLE
  24. KALETRA [Concomitant]
     Active Substance: LOPINAVIR\RITONAVIR
  25. ACETAMINOPHEN. [Concomitant]
     Active Substance: ACETAMINOPHEN
  26. NORVIR [Concomitant]
     Active Substance: RITONAVIR
  27. TRIZIVIR [Concomitant]
     Active Substance: ABACAVIR SULFATE\LAMIVUDINE\ZIDOVUDINE
  28. OMEPRAZOLE. [Concomitant]
     Active Substance: OMEPRAZOLE
  29. AMOXICILLIN. [Concomitant]
     Active Substance: AMOXICILLIN
  30. RETROVIR [Concomitant]
     Active Substance: ZIDOVUDINE
  31. VIDEX [Concomitant]
     Active Substance: DIDANOSINE
  32. ZERIT [Concomitant]
     Active Substance: STAVUDINE
  33. VIREAD [Suspect]
     Active Substance: TENOFOVIR DISOPROXIL FUMARATE
     Indication: HIV INFECTION
     Dosage: UNK
     Route: 048
     Dates: start: 2001, end: 2010
  34. ACYCLOVIR [ACICLOVIR] [Concomitant]
     Active Substance: ACYCLOVIR
  35. SUSTIVA [Concomitant]
     Active Substance: EFAVIRENZ
  36. BACTRIM [Concomitant]
     Active Substance: SULFAMETHOXAZOLE\TRIMETHOPRIM

REACTIONS (17)
  - Pathological fracture [Unknown]
  - Back pain [Unknown]
  - Vitamin D decreased [Unknown]
  - Fatigue [Unknown]
  - Anxiety [Recovered/Resolved]
  - Anhedonia [Not Recovered/Not Resolved]
  - Fanconi syndrome acquired [Unknown]
  - Osteopenia [Not Recovered/Not Resolved]
  - Emotional distress [Recovered/Resolved]
  - Glycosuria [Unknown]
  - Renal failure [Unknown]
  - Bone density decreased [Not Recovered/Not Resolved]
  - Pain [Recovered/Resolved]
  - Economic problem [Not Recovered/Not Resolved]
  - Proteinuria [Unknown]
  - Osteoporosis [Not Recovered/Not Resolved]
  - Depression [Recovered/Resolved]

NARRATIVE: CASE EVENT DATE: 2008
